FAERS Safety Report 8843215 (Version 2)
Quarter: 2012Q4

REPORT INFORMATION
  Report Type: 
  Country: US (occurrence: US)
  Receive Date: 20121016
  Receipt Date: 20121120
  Transmission Date: 20130627
  Serious: No
  Sender: FDA-Public Use
  Company Number: US-VERTEX PHARMACEUTICAL INC.-2012-022197

PATIENT
  Age: 69 Year
  Sex: Male
  Weight: 101 kg

DRUGS (3)
  1. VX-950 (TELAPREVIR) [Suspect]
     Indication: HEPATITIS C
     Dosage: 750 mg, tid
     Route: 048
     Dates: start: 20120529
  2. RIBASPHERE [Concomitant]
     Indication: HEPATITIS C
     Dosage: 200 mg, qd
     Route: 048
     Dates: start: 20120529, end: 20120928
  3. PEGASYS [Concomitant]
     Indication: HEPATITIS C
     Dosage: 135 ?g, qw
     Route: 058
     Dates: start: 20120529, end: 20120928

REACTIONS (1)
  - Drug ineffective [Unknown]
